FAERS Safety Report 21086744 (Version 2)
Quarter: 2022Q3

REPORT INFORMATION
  Report Type: Spontaneous
  Country: ES (occurrence: ES)
  Receive Date: 20220715
  Receipt Date: 20220803
  Transmission Date: 20221027
  Serious: Yes (Hospitalization, Congenital Anomaly, Other)
  Sender: FDA-Public Use
  Company Number: ES-AEMPS-1215822

PATIENT
  Age: 66 Year
  Sex: Female

DRUGS (10)
  1. ZOLEDRONIC ACID [Suspect]
     Active Substance: ZOLEDRONIC ACID
     Indication: Osteoporosis
     Dosage: 5 MILLIGRAM
     Route: 042
     Dates: start: 20220602
  2. ACETAMINOPHEN\TRAMADOL HYDROCHLORIDE [Concomitant]
     Active Substance: ACETAMINOPHEN\TRAMADOL HYDROCHLORIDE
     Indication: Pain
     Dosage: UNK (1.0 COMP DECOCE) (60 TABLETS)
     Route: 048
     Dates: start: 20220602
  3. FOSFOMYCIN SODIUM [Concomitant]
     Active Substance: FOSFOMYCIN SODIUM
     Indication: Dysuria
     Dosage: 500 MILLIGRAM, 3 TIMES A DAY (24 CAPSULES)
     Route: 048
     Dates: start: 20220611
  4. OMEPRAZOL MABO [Concomitant]
     Indication: Duodenitis
     Dosage: UNK (40.0 MG A-DECE) (56 CAPSULES (BOTTLE))
     Route: 048
     Dates: start: 20190701
  5. HYDROCHLOROTHIAZIDE\IRBESARTAN [Concomitant]
     Active Substance: HYDROCHLOROTHIAZIDE\IRBESARTAN
     Indication: Essential hypertension
     Dosage: UNK (300.0 MG DE) (28 TABLETS)
     Route: 048
     Dates: start: 20081105
  6. ATORVASTATIN CALCIUM\EZETIMIBE [Concomitant]
     Active Substance: ATORVASTATIN CALCIUM\EZETIMIBE
     Indication: Hyperlipidaemia
     Dosage: UNK (1.0 COMP W/24H) (30 TABLETS)
     Route: 048
     Dates: start: 20170602
  7. Nolotil [Concomitant]
     Indication: Pain
     Dosage: 575 MILLIGRAM, 3 TIMES A DAY (20 CAPSULES)
     Route: 048
     Dates: start: 20220611
  8. PARACETAMOL CINFA [Concomitant]
     Indication: Pain
     Dosage: UNK (1.0 G C/8 HOURS (40 TABLETS))
     Route: 048
     Dates: start: 20220602
  9. METFORMIN\SITAGLIPTIN [Concomitant]
     Active Substance: METFORMIN\SITAGLIPTIN
     Indication: Type 2 diabetes mellitus
     Dosage: UNK (1.0 COMP DECE (56 TABLETS))
     Route: 048
     Dates: start: 20211215
  10. BISOPROLOL FUMARATE [Concomitant]
     Active Substance: BISOPROLOL FUMARATE
     Indication: Tobacco abuse
     Dosage: UNK (2.5 MG DE (28 TABLETS))
     Route: 048
     Dates: start: 20220507

REACTIONS (1)
  - Renal tubular necrosis [Recovering/Resolving]

NARRATIVE: CASE EVENT DATE: 20220613
